FAERS Safety Report 13329748 (Version 2)
Quarter: 2017Q2

REPORT INFORMATION
  Report Type: Report from Study
  Country: KR (occurrence: KR)
  Receive Date: 20170313
  Receipt Date: 20170418
  Transmission Date: 20170830
  Serious: Yes (Hospitalization)
  Sender: FDA-Public Use
  Company Number: KR-ACTELION-A-CH2017-149558

PATIENT
  Age: 60 Year
  Sex: Female
  Weight: 55.5 kg

DRUGS (17)
  1. OPSUMIT [Suspect]
     Active Substance: MACITENTAN
     Indication: PULMONARY ARTERIAL HYPERTENSION
     Dosage: 10 MG, QD
     Route: 048
     Dates: start: 20161019
  2. PAHTENSION [Concomitant]
     Indication: PULMONARY ARTERIAL HYPERTENSION
     Dosage: 60 MG, QD
     Route: 048
     Dates: start: 20150406
  3. FERROBA-U [Concomitant]
     Dosage: 512 UNK, UNK
     Route: 048
     Dates: start: 20150401
  4. ESOMEPRAZOL [Concomitant]
     Active Substance: ESOMEPRAZOLE
     Dosage: 20 MG, OD
     Route: 048
     Dates: start: 20150512
  5. MYREPT [Concomitant]
     Active Substance: MYCOPHENOLATE MOFETIL
     Dosage: 2000 MG, QD
     Route: 048
     Dates: start: 20170201
  6. SEPTRIN [Concomitant]
     Active Substance: SULFAMETHOXAZOLE\TRIMETHOPRIM
     Dosage: 1 MG, QD
     Route: 048
     Dates: start: 20150429
  7. ALDACTONE [Concomitant]
     Active Substance: SPIRONOLACTONE
     Dosage: 25 MG, UNK
     Route: 048
     Dates: start: 20160113
  8. DICAMAX [Concomitant]
  9. BORYUNG NIMODIPINE [Concomitant]
     Dosage: 100 MG, QD
     Route: 048
     Dates: start: 20150411
  10. XANAX [Concomitant]
     Active Substance: ALPRAZOLAM
     Dosage: 0.125 MG, OD
     Route: 048
     Dates: start: 20170224
  11. DIGOSIN [Concomitant]
     Active Substance: DIGOXIN
     Dosage: 0.5 MG, QD
     Route: 048
     Dates: start: 20160420, end: 20170111
  12. MYREPT [Concomitant]
     Active Substance: MYCOPHENOLATE MOFETIL
     Dosage: 3000 MG, QD
     Route: 048
     Dates: start: 20161129, end: 20170131
  13. LASIX [Concomitant]
     Active Substance: FUROSEMIDE
     Dosage: 40 MG, QD
     Route: 048
     Dates: start: 20150812
  14. FEBURIC [Concomitant]
     Active Substance: FEBUXOSTAT
     Dosage: 40 MG, OD
     Route: 048
  15. SYNTHROID [Concomitant]
     Active Substance: LEVOTHYROXINE SODIUM
     Dosage: 0.1 MG, OD
     Route: 048
     Dates: start: 20150401
  16. MUCOSTA [Concomitant]
     Active Substance: REBAMIPIDE
     Dosage: 100 MG, BID
     Route: 048
     Dates: start: 20160428
  17. CALCORT [Concomitant]
     Active Substance: DEFLAZACORT
     Dosage: 6 MG, BID
     Route: 048
     Dates: start: 20150401

REACTIONS (10)
  - Dyspnoea [Not Recovered/Not Resolved]
  - Antibody test abnormal [Recovered/Resolved]
  - Pyrexia [Unknown]
  - Cardiac failure [Unknown]
  - Pericardial effusion [Recovered/Resolved]
  - Systemic lupus erythematosus [Unknown]
  - Interstitial lung disease [Unknown]
  - Procalcitonin increased [Unknown]
  - Leukocytosis [Unknown]
  - Lupus pneumonitis [Recovered/Resolved]

NARRATIVE: CASE EVENT DATE: 20161019
